FAERS Safety Report 21926305 (Version 1)
Quarter: 2023Q1

REPORT INFORMATION
  Report Type: Spontaneous
  Country: FR (occurrence: None)
  Receive Date: 20230130
  Receipt Date: 20230130
  Transmission Date: 20230418
  Serious: Yes (Death)
  Sender: FDA-Public Use
  Company Number: None

PATIENT
  Age: 56 Year
  Sex: Female
  Weight: 95 kg

DRUGS (10)
  1. LEVOTHYROXINE SODIUM [Suspect]
     Active Substance: LEVOTHYROXINE SODIUM
     Indication: Hypothyroidism
     Dosage: SCORED TABLET
     Route: 048
     Dates: start: 2021, end: 20230102
  2. XGEVA [Suspect]
     Active Substance: DENOSUMAB
     Indication: Osteoporosis prophylaxis
     Dosage: XGEVA 120 MG, INJECTABLE SOLUTION
     Route: 058
     Dates: start: 2022, end: 20230102
  3. METOCLOPRAMIDE [Suspect]
     Active Substance: METOCLOPRAMIDE
     Indication: Nausea
     Route: 048
     Dates: start: 20221114, end: 20230102
  4. SMECTA [Suspect]
     Active Substance: MONTMORILLONITE
     Indication: Diarrhoea
     Route: 048
     Dates: start: 20221114, end: 20230102
  5. CALCIUM\CHOLECALCIFEROL [Suspect]
     Active Substance: CALCIUM\CHOLECALCIFEROL
     Indication: Product used for unknown indication
     Dosage: ORAL POWDER IN SACHET
     Route: 048
     Dates: start: 2022, end: 20230102
  6. ANORO ELLIPTA [Suspect]
     Active Substance: UMECLIDINIUM BROMIDE\VILANTEROL TRIFENATATE
     Indication: Chronic obstructive pulmonary disease
     Dosage: MICROGRAMS/22 MICROGRAMS, POWDER FOR INHALATION IN UNIDOSE CONTAINER
     Route: 048
     Dates: start: 2022, end: 20230102
  7. FENTANYL [Suspect]
     Active Substance: FENTANYL
     Indication: Bone pain
     Dosage: 50 MICROGRAMS/HOUR (8.4 MG/21 CM2), TRANSDERMAL DEVICE
     Route: 062
     Dates: start: 20221114, end: 20230102
  8. HYDROCORTISONE [Suspect]
     Active Substance: HYDROCORTISONE
     Indication: Adrenal insufficiency
     Dosage: 4.5 TO 10 MG/DAY
     Route: 048
     Dates: start: 2021, end: 20230102
  9. MORPHINE SULFATE [Suspect]
     Active Substance: MORPHINE SULFATE
     Indication: Bone pain
     Route: 048
     Dates: start: 2022, end: 20230102
  10. SOTORASIB [Suspect]
     Active Substance: SOTORASIB
     Indication: Lung adenocarcinoma
     Dosage: 120 MG, FILM-COATED TABLETS
     Route: 048
     Dates: start: 20221116, end: 20230102

REACTIONS (1)
  - Cardio-respiratory arrest [Fatal]

NARRATIVE: CASE EVENT DATE: 20230102
